FAERS Safety Report 26100064 (Version 1)
Quarter: 2025Q4

REPORT INFORMATION
  Report Type: Spontaneous
  Country: US (occurrence: US)
  Receive Date: 20251128
  Receipt Date: 20251128
  Transmission Date: 20260117
  Serious: No
  Sender: AUROBINDO
  Company Number: US-AUROBINDO-AUR-APL-2025-057085

PATIENT
  Age: 1 Month
  Sex: Male
  Weight: 4.38 kg

DRUGS (1)
  1. VALGANCICLOVIR HYDROCHLORIDE [Suspect]
     Active Substance: VALGANCICLOVIR HYDROCHLORIDE
     Indication: Congenital cytomegalovirus infection
     Dosage: 1 MILLILITER, TWO TIMES A DAY
     Dates: start: 20250929

REACTIONS (2)
  - Product storage error [Unknown]
  - Product administration error [Unknown]
